FAERS Safety Report 22607653 (Version 1)
Quarter: 2023Q2

REPORT INFORMATION
  Report Type: Spontaneous
  Country: US (occurrence: US)
  Receive Date: 20230616
  Receipt Date: 20230616
  Transmission Date: 20230722
  Serious: Yes (Other)
  Sender: FDA-Public Use
  Company Number: US-AUROBINDO-AUR-APL-2023-041900

PATIENT
  Age: 15 Year
  Sex: Male

DRUGS (2)
  1. WARFARIN SODIUM [Suspect]
     Active Substance: WARFARIN SODIUM
     Indication: Suicide attempt
     Dosage: 180 DOSAGE FORM
     Route: 048
  2. WARFARIN SODIUM [Suspect]
     Active Substance: WARFARIN SODIUM
     Indication: Suicide attempt
     Dosage: 100 DOSAGE FORM
     Route: 048

REACTIONS (3)
  - International normalised ratio increased [Unknown]
  - Intentional product misuse [Unknown]
  - Intentional overdose [Unknown]
